FAERS Safety Report 11987534 (Version 1)
Quarter: 2016Q1

REPORT INFORMATION
  Report Type: Spontaneous
  Country: US (occurrence: US)
  Receive Date: 20160202
  Receipt Date: 20160202
  Transmission Date: 20160526
  Serious: No
  Sender: FDA-Public Use
  Company Number: US-BRISTOL-MYERS SQUIBB COMPANY-BMS-2016-006916

PATIENT
  Age: 17 Year
  Sex: Male

DRUGS (3)
  1. ABILIFY [Suspect]
     Active Substance: ARIPIPRAZOLE
     Indication: MOOD ALTERED
     Dosage: 2.5 MG, UNK
     Route: 065
     Dates: start: 201504
  2. ABILIFY [Suspect]
     Active Substance: ARIPIPRAZOLE
     Dosage: 5 MG, UNK
     Route: 065
     Dates: start: 201505
  3. ABILIFY [Suspect]
     Active Substance: ARIPIPRAZOLE
     Dosage: 7.5 MG, UNK
     Route: 065
     Dates: start: 20151028

REACTIONS (5)
  - Headache [Unknown]
  - Eye disorder [Unknown]
  - Syncope [Unknown]
  - Fall [Unknown]
  - Off label use [Unknown]
